FAERS Safety Report 11580718 (Version 1)
Quarter: 2015Q3

REPORT INFORMATION
  Report Type: Report from Study
  Country: FR (occurrence: FR)
  Receive Date: 20150930
  Receipt Date: 20150930
  Transmission Date: 20151125
  Serious: Yes (Other)
  Sender: FDA-Public Use
  Company Number: FR-BRISTOL-MYERS SQUIBB COMPANY-19944917

PATIENT
  Age: 40 Year
  Sex: Female

DRUGS (3)
  1. WARFARIN SODIUM. [Suspect]
     Active Substance: WARFARIN SODIUM
     Indication: PRODUCT USED FOR UNKNOWN INDICATION
     Dosage: 14 MG, UNK
     Route: 065
  2. PREVISCAN [Suspect]
     Active Substance: FLUINDIONE
     Indication: PRODUCT USED FOR UNKNOWN INDICATION
     Route: 065
  3. LOVENOX [Concomitant]
     Active Substance: ENOXAPARIN SODIUM
     Indication: PRODUCT USED FOR UNKNOWN INDICATION
     Dosage: 1 DF, QD
     Route: 065
     Dates: start: 201210

REACTIONS (5)
  - Cerebrovascular accident [Unknown]
  - Antiphospholipid syndrome [Unknown]
  - Maternal exposure during pregnancy [Unknown]
  - Drug resistance [Unknown]
  - Phlebitis [Unknown]

NARRATIVE: CASE EVENT DATE: 201209
